FAERS Safety Report 8786816 (Version 9)
Quarter: 2013Q3

REPORT INFORMATION
  Report Type: Report from Study
  Country: JP (occurrence: JP)
  Receive Date: 20120914
  Receipt Date: 20130829
  Transmission Date: 20140515
  Serious: Yes (Hospitalization)
  Sender: FDA-Public Use
  Company Number: JP-MSD-1207JPN012258

PATIENT
  Age: 55 Year
  Sex: Female
  Weight: 52.5 kg

DRUGS (40)
  1. RIBAVIRIN [Suspect]
     Dosage: 2 DF, QD
     Route: 048
     Dates: start: 20120524, end: 20120527
  2. RIBAVIRIN [Suspect]
     Dosage: 2 DF, QD
     Route: 048
     Dates: start: 20120529, end: 20120602
  3. RIBAVIRIN [Suspect]
     Dosage: 2 DF, QD
     Route: 048
     Dates: start: 20120604, end: 20120606
  4. RIBAVIRIN [Suspect]
     Dosage: 2 DF, QD
     Route: 048
     Dates: start: 20120609, end: 20120611
  5. PEGINTERFERON ALFA-2B [Suspect]
     Dosage: 80 MICROGRAM, QW
     Route: 058
     Dates: start: 20111005, end: 20120720
  6. PLACEBO [Suspect]
     Indication: CHRONIC HEPATITIS C
     Dosage: UNK
     Route: 048
     Dates: start: 20120305, end: 20120320
  7. PLACEBO [Suspect]
     Dosage: UNK
     Route: 048
     Dates: start: 20111005, end: 20111106
  8. PLACEBO [Suspect]
     Dosage: UNK
     Route: 048
     Dates: start: 20111107, end: 20111120
  9. PLACEBO [Suspect]
     Dosage: UNK
     Route: 048
     Dates: start: 20111122, end: 20111127
  10. PLACEBO [Suspect]
     Dosage: UNK
     Route: 048
     Dates: start: 20111129, end: 20111204
  11. PLACEBO [Suspect]
     Dosage: UNK
     Route: 048
     Dates: start: 20111206, end: 20111220
  12. PLACEBO [Suspect]
     Dosage: UNK
     Route: 048
     Dates: start: 20111222, end: 20111225
  13. PLACEBO [Suspect]
     Dosage: UNK
     Route: 048
     Dates: start: 20111227, end: 20111227
  14. PLACEBO [Suspect]
     Dosage: UNK
     Route: 048
     Dates: start: 20111228, end: 20120108
  15. PLACEBO [Suspect]
     Dosage: UNK
     Route: 048
     Dates: start: 20120110, end: 20120110
  16. PLACEBO [Suspect]
     Dosage: UNK
     Route: 048
     Dates: start: 20120112, end: 20120113
  17. PLACEBO [Suspect]
     Dosage: UNK
     Route: 048
     Dates: start: 20120115, end: 20120124
  18. PLACEBO [Suspect]
     Dosage: UNK
     Route: 048
     Dates: start: 20120125, end: 20120206
  19. PLACEBO [Suspect]
     Dosage: UNK
     Route: 048
     Dates: start: 20120208, end: 20120221
  20. PLACEBO [Suspect]
     Dosage: UNK
     Route: 048
     Dates: start: 20120222, end: 20120303
  21. RIBAVIRIN [Suspect]
     Indication: CHRONIC HEPATITIS C
     Dosage: 2 DF, QD
     Route: 048
     Dates: start: 20120613, end: 20120616
  22. RIBAVIRIN [Suspect]
     Dosage: 1 DF, QD
     Route: 048
     Dates: start: 20111005, end: 20111120
  23. RIBAVIRIN [Suspect]
     Dosage: 2 DF, QD
     Route: 048
     Dates: start: 20111005, end: 20111105
  24. RIBAVIRIN [Suspect]
     Dosage: 1 DF, QD
     Route: 048
     Dates: start: 20111122, end: 20111127
  25. RIBAVIRIN [Suspect]
     Dosage: 2 DF, QD
     Route: 048
     Dates: start: 20111107, end: 20111204
  26. RIBAVIRIN [Suspect]
     Dosage: 1 DF, QD
     Route: 048
     Dates: start: 20111129, end: 20111204
  27. RIBAVIRIN [Suspect]
     Dosage: 2 DF, QD
     Route: 048
     Dates: start: 20111206, end: 20111220
  28. RIBAVIRIN [Suspect]
     Dosage: 1 DF, QD
     Route: 048
     Dates: start: 20111229, end: 20120303
  29. RIBAVIRIN [Suspect]
     Dosage: 2 DF, QD
     Route: 048
     Dates: start: 20111222, end: 20111225
  30. RIBAVIRIN [Suspect]
     Dosage: 2 DF, QD
     Route: 048
     Dates: start: 20111228, end: 20120108
  31. RIBAVIRIN [Suspect]
     Dosage: 1 DF, QD
     Route: 048
     Dates: start: 20120305, end: 20120320
  32. RIBAVIRIN [Suspect]
     Dosage: 2 DF, QD
     Route: 048
     Dates: start: 20120112, end: 20120113
  33. RIBAVIRIN [Suspect]
     Dosage: 1 DF, QD
     Route: 048
     Dates: start: 20120323, end: 20120421
  34. RIBAVIRIN [Suspect]
     Dosage: 2 DF, QD
     Route: 048
     Dates: start: 20120115, end: 20120206
  35. RIBAVIRIN [Suspect]
     Dosage: 1 DF, QD
     Route: 048
     Dates: start: 20120423, end: 20120602
  36. RIBAVIRIN [Suspect]
     Dosage: 2 DF, QD
     Route: 048
     Dates: start: 20120208, end: 20120320
  37. RIBAVIRIN [Suspect]
     Dosage: 1 DF, QD
     Route: 048
     Dates: start: 20120604, end: 20120622
  38. RIBAVIRIN [Suspect]
     Dosage: 2 DF, QD
     Route: 048
     Dates: start: 20120322, end: 20120512
  39. RIBAVIRIN [Suspect]
     Dosage: 2 DF, QD
     Route: 048
     Dates: start: 20120514, end: 20120520
  40. RIBAVIRIN [Suspect]
     Dosage: 2 DF, QD
     Route: 048
     Dates: start: 20120522, end: 20120522

REACTIONS (1)
  - Gastric cancer [Recovered/Resolved]
